FAERS Safety Report 4664479-2 (Version None)
Quarter: 2005Q2

REPORT INFORMATION
  Report Type: 
  Country: None (occurrence: None)
  Receive Date: 20050518
  Receipt Date: 20050510
  Transmission Date: 20051028
  Serious: Yes (Hospitalization, Other)
  Sender: FDA-Public Use
  Company Number: US-BRISTOL-MYERS SQUIBB COMPANY-12962700

PATIENT
  Age: 55 Year
  Sex: Female
  Weight: 57 kg

DRUGS (1)
  1. SERZONE [Suspect]
     Indication: DEPRESSION
     Route: 048

REACTIONS (4)
  - AGITATION [None]
  - ANXIETY [None]
  - MUSCLE RIGIDITY [None]
  - OVERDOSE [None]
